FAERS Safety Report 6040221-8 (Version None)
Quarter: 2009Q1

REPORT INFORMATION
  Report Type: 
  Country: None (occurrence: None)
  Receive Date: 20090116
  Receipt Date: 20080117
  Transmission Date: 20090719
  Serious: No
  Sender: FDA-Public Use
  Company Number: US-BRISTOL-MYERS SQUIBB COMPANY-14044887

PATIENT
  Age: 53 Year
  Sex: Female
  Weight: 68 kg

DRUGS (8)
  1. ABILIFY [Suspect]
     Indication: BIPOLAR DISORDER
     Dosage: EARLIER SHE TOOK 5MG PO DAILY
     Route: 048
     Dates: start: 20080117
  2. HYDROCHLOROTHIAZIDE [Concomitant]
  3. ENALAPRIL MALEATE [Concomitant]
  4. CITALOPRAM HYDROBROMIDE [Concomitant]
  5. SINGULAIR [Concomitant]
  6. ZYRTEC-D 12 HOUR [Concomitant]
  7. KLOR-CON [Concomitant]
  8. TYSABRI [Concomitant]

REACTIONS (1)
  - FATIGUE [None]
